FAERS Safety Report 24981682 (Version 2)
Quarter: 2025Q2

REPORT INFORMATION
  Report Type: Spontaneous
  Country: US (occurrence: US)
  Receive Date: 20250218
  Receipt Date: 20250410
  Transmission Date: 20250717
  Serious: Yes (Other)
  Sender: BAYER
  Company Number: US-BAYER-2025A021417

PATIENT
  Age: 29 Year
  Sex: Female

DRUGS (3)
  1. ESTRADIOL [Suspect]
     Active Substance: ESTRADIOL
     Indication: In vitro fertilisation
     Dosage: 2 MG, TID
     Route: 048
     Dates: start: 20230626, end: 20230908
  2. PROGESTERONE [Concomitant]
     Active Substance: PROGESTERONE
     Dosage: 75 MG, QD
     Route: 030
  3. ECULIZUMAB [Concomitant]
     Active Substance: ECULIZUMAB

REACTIONS (2)
  - Thrombotic microangiopathy [None]
  - Atypical haemolytic uraemic syndrome [None]

NARRATIVE: CASE EVENT DATE: 20230801
